FAERS Safety Report 8583632 (Version 7)
Quarter: 2018Q2

REPORT INFORMATION
  Report Type: Spontaneous
  Country: US (occurrence: US)
  Receive Date: 20120529
  Receipt Date: 20180601
  Transmission Date: 20180711
  Serious: Yes (Hospitalization, Other)
  Sender: FDA-Public Use
  Company Number: US-BAYER-2012-052301

PATIENT
  Age: 35 Year
  Sex: Female

DRUGS (22)
  1. GAMMAGARD [Concomitant]
     Active Substance: HUMAN IMMUNOGLOBULIN G
     Dosage: 30GM/300ML PO
  2. LEVAQUIN [Suspect]
     Active Substance: LEVOFLOXACIN
     Indication: BRONCHITIS
  3. PREDNISONE. [Concomitant]
     Active Substance: PREDNISONE
     Indication: PAIN
     Dosage: 5-L0MG QD
  4. LEVAQUIN [Suspect]
     Active Substance: LEVOFLOXACIN
     Indication: ACUTE SINUSITIS
     Dosage: 500 MG, QD
     Route: 048
     Dates: start: 20110218, end: 20110228
  5. FLOXIN [OFLOXACIN] [Concomitant]
  6. MIRENA [Suspect]
     Active Substance: LEVONORGESTREL
     Indication: OVARIAN CYST
  7. VITAMIN B12 [Concomitant]
     Active Substance: CYANOCOBALAMIN
     Indication: NEUROPATHY PERIPHERAL
  8. MIRENA [Suspect]
     Active Substance: LEVONORGESTREL
     Indication: CONTRACEPTION
     Dosage: 20 MCG/24HR, CONT
     Route: 015
     Dates: start: 201012, end: 201102
  9. ESTRADIOL. [Concomitant]
     Active Substance: ESTRADIOL
     Indication: HORMONE REPLACEMENT THERAPY
     Dosage: 1MG DAILY
  10. DIAZEPAM. [Concomitant]
     Active Substance: DIAZEPAM
     Indication: ANXIETY
     Dosage: 5MG AS NEEDED
  11. CIPRO [Suspect]
     Active Substance: CIPROFLOXACIN HYDROCHLORIDE
     Indication: BRONCHITIS
  12. VIGAMOX [Concomitant]
     Active Substance: MOXIFLOXACIN HYDROCHLORIDE
     Dosage: 0.5 %, UNK
     Dates: start: 20130706, end: 20130709
  13. XYZAL [Concomitant]
     Active Substance: LEVOCETIRIZINE DIHYDROCHLORIDE
     Indication: MULTIPLE ALLERGIES
     Dosage: 5MG DAILY
  14. METHERGINE [Concomitant]
     Active Substance: METHYLERGONOVINE MALEATE
     Dosage: 1 DF, TID 1 TABLET 3 TIMES DAILY BETWEEN MEALS FOR 5 DAYS
  15. AVELOX [Suspect]
     Active Substance: MOXIFLOXACIN HYDROCHLORIDE
     Indication: BRONCHITIS
     Dosage: 400 MG, QD
     Route: 048
     Dates: start: 20110701, end: 20110711
  16. CIPRO [Suspect]
     Active Substance: CIPROFLOXACIN HYDROCHLORIDE
     Indication: ACUTE SINUSITIS
     Dosage: 500 MG, QD
     Route: 048
     Dates: start: 20100118, end: 20100128
  17. KETOROLAC [Concomitant]
     Active Substance: KETOROLAC\KETOROLAC TROMETHAMINE
     Indication: HEADACHE
     Dosage: 30MG/1ML QD
  18. IMURAN [Concomitant]
     Active Substance: AZATHIOPRINE
     Dosage: 50MG QD
  19. XOLAIR [Concomitant]
     Active Substance: OMALIZUMAB
     Indication: URTICARIA
     Dosage: 300 MG ONCE MONTHLY
  20. POTASSIUM [Concomitant]
     Active Substance: POTASSIUM
     Indication: BLOOD POTASSIUM DECREASED
  21. MULTIVITAMIN [Concomitant]
     Active Substance: VITAMINS
     Dosage: 1 TABLET DAILY FOR THREE MONTHS
  22. PRILOSEC [Concomitant]
     Active Substance: OMEPRAZOLE MAGNESIUM
     Dosage: 20MG DAILY

REACTIONS (72)
  - Emotional distress [None]
  - Paraesthesia [None]
  - Skin injury [None]
  - Small fibre neuropathy [None]
  - Arthralgia [None]
  - Chest discomfort [None]
  - Fall [None]
  - Pain [Not Recovered/Not Resolved]
  - Neuralgia [None]
  - Fibromyalgia [None]
  - Insomnia [None]
  - Tinnitus [None]
  - Peripheral sensory neuropathy [Not Recovered/Not Resolved]
  - Nervous system disorder [None]
  - Mental disorder [None]
  - Musculoskeletal injury [None]
  - Peripheral sensorimotor neuropathy [None]
  - Neuropathy peripheral [None]
  - Tremor [None]
  - Peripheral swelling [None]
  - Walking disability [None]
  - Meniscus injury [None]
  - Muscle tightness [None]
  - Ataxia [None]
  - Panic attack [Not Recovered/Not Resolved]
  - Injury [Not Recovered/Not Resolved]
  - Injury [None]
  - Burning sensation [None]
  - Cardiovascular disorder [None]
  - Neck pain [None]
  - Myositis [None]
  - Impaired work ability [None]
  - Anxiety [None]
  - Dizziness [None]
  - Feeling of body temperature change [None]
  - Nausea [None]
  - Fine motor skill dysfunction [None]
  - Raynaud^s phenomenon [None]
  - Limb discomfort [None]
  - Post procedural haemorrhage [None]
  - Asthenia [None]
  - Sensory disturbance [None]
  - Carpal tunnel syndrome [None]
  - Memory impairment [None]
  - Vertigo positional [None]
  - Joint stiffness [None]
  - Nail bed tenderness [None]
  - Swelling [None]
  - Tendon rupture [None]
  - Device dislocation [None]
  - Polyneuropathy [None]
  - Polyneuropathy [None]
  - Disability [None]
  - Back pain [None]
  - Tendonitis [None]
  - Myalgia [None]
  - Thoracic outlet syndrome [None]
  - Muscle spasms [None]
  - Urinary retention [None]
  - Cognitive disorder [None]
  - Hypoaesthesia [None]
  - Pain [None]
  - Pain in extremity [None]
  - Panic attack [None]
  - Vitreous floaters [None]
  - Muscle twitching [None]
  - Dysuria [None]
  - Pain in jaw [None]
  - Toxicity to various agents [None]
  - Apraxia [Not Recovered/Not Resolved]
  - Sensory loss [None]
  - Depression [None]

NARRATIVE: CASE EVENT DATE: 2011
